FAERS Safety Report 5483438-3 (Version None)
Quarter: 2007Q4

REPORT INFORMATION
  Report Type: 
  Country: None (occurrence: None)
  Receive Date: 20071009
  Receipt Date: 20071009
  Transmission Date: 20080405
  Serious: No
  Sender: FDA-Public Use
  Company Number: None

PATIENT
  Age: 47 Year
  Sex: Female
  Weight: 81.7 kg

DRUGS (10)
  1. EPIRUBICIN [Suspect]
     Indication: UTERINE NEOPLASM
     Dosage: 225 MG/CYCLE ONCE OVER 3-5 MIN IV
     Route: 042
     Dates: start: 20070117
  2. APREPITANT [Concomitant]
  3. DEXAMETHASONE 0.5MG TAB [Concomitant]
  4. ONDANSETRON [Concomitant]
  5. ALLOPURINOL [Concomitant]
  6. FLUCONAZOLE [Concomitant]
  7. NEUPOGEN [Concomitant]
  8. ZOSYN [Concomitant]
  9. FUROSEMIDE [Concomitant]
  10. MORPHINE [Concomitant]

REACTIONS (1)
  - CARDIOTOXICITY [None]
